FAERS Safety Report 26014780 (Version 1)
Quarter: 2025Q4

REPORT INFORMATION
  Report Type: Report from Study
  Country: AU (occurrence: AU)
  Receive Date: 20251108
  Receipt Date: 20251108
  Transmission Date: 20260118
  Serious: Yes (Other)
  Sender: ROCHE
  Company Number: AU-ROCHE-10000428630

PATIENT

DRUGS (1)
  1. RITUXIMAB [Suspect]
     Active Substance: RITUXIMAB
     Indication: Mantle cell lymphoma
     Route: 065

REACTIONS (2)
  - Off label use [Unknown]
  - Mantle cell lymphoma [Unknown]
